FAERS Safety Report 21151097 (Version 2)
Quarter: 2022Q3

REPORT INFORMATION
  Report Type: Report from Study
  Country: DE (occurrence: DE)
  Receive Date: 20220729
  Receipt Date: 20220804
  Transmission Date: 20221027
  Serious: Yes (Hospitalization)
  Sender: FDA-Public Use
  Company Number: DE-EXELIXIS-XL18422054302

PATIENT

DRUGS (5)
  1. CABOZANTINIB [Suspect]
     Active Substance: CABOZANTINIB
     Indication: Pancreatic neuroendocrine tumour
     Dosage: 60 MG, QD
     Dates: start: 20220502, end: 20220710
  2. AVELUMAB [Suspect]
     Active Substance: AVELUMAB
     Indication: Pancreatic neuroendocrine tumour
     Dosage: 800 MG/INFUSION
     Dates: start: 20220516, end: 20220711
  3. LEVOTHYROXINE SODIUM [Concomitant]
     Active Substance: LEVOTHYROXINE SODIUM
     Dosage: UNK
  4. DOXYDERMA [Concomitant]
     Dosage: UNK
  5. PAROXETINE HYDROCHLORIDE [Concomitant]
     Active Substance: PAROXETINE HYDROCHLORIDE

REACTIONS (1)
  - Cholestasis [Unknown]

NARRATIVE: CASE EVENT DATE: 20220722
